FAERS Safety Report 16122309 (Version 27)
Quarter: 2024Q3

REPORT INFORMATION
  Report Type: Report from Study
  Country: DE (occurrence: DE)
  Receive Date: 20190327
  Receipt Date: 20240913
  Transmission Date: 20241017
  Serious: Yes (Hospitalization, Other)
  Sender: ROCHE
  Company Number: DE-ROCHE-2218327

PATIENT
  Age: 38 Year
  Sex: Female

DRUGS (5)
  1. OCREVUS [Suspect]
     Active Substance: OCRELIZUMAB
     Indication: Relapsing-remitting multiple sclerosis
     Dosage: NEXT DOSE 300 MG ON 01/NOV/2018, 600 MG FREQUENCY: 197 DAYS, 182 DAYS.?RECEIVED THE INFUSIONS (9TH A
     Route: 042
     Dates: start: 20181018
  2. OCREVUS [Suspect]
     Active Substance: OCRELIZUMAB
     Dosage: SUBSEQUENT DOSES OF OCRELIZUMAB: 14/APR/2020, 14/APR/2021, 19/APR/2023, 18/OCT/2023
     Route: 042
     Dates: start: 20190415
  3. COMIRNATY (TOZINAMERAN) [Suspect]
     Active Substance: TOZINAMERAN
     Indication: COVID-19 immunisation
     Route: 065
  4. CHOLECALCIFEROL [Concomitant]
     Active Substance: CHOLECALCIFEROL
  5. VOLTAREN [Concomitant]
     Active Substance: DICLOFENAC SODIUM

REACTIONS (38)
  - Dizziness [Recovered/Resolved]
  - Asthenia [Recovered/Resolved]
  - Oral herpes [Recovered/Resolved]
  - Nausea [Recovered/Resolved]
  - Gastrointestinal infection [Recovered/Resolved]
  - Gingivitis [Recovered/Resolved]
  - C-reactive protein increased [Recovered/Resolved]
  - Tonsillar inflammation [Recovered/Resolved]
  - Fatigue [Recovered/Resolved]
  - Malaise [Recovered/Resolved]
  - Chills [Recovered/Resolved]
  - Pyrexia [Recovered/Resolved]
  - Fall [Unknown]
  - Ear injury [Recovered/Resolved]
  - Tendonitis [Recovered/Resolved]
  - Headache [Recovered/Resolved]
  - Pain in extremity [Recovered/Resolved]
  - Pain [Recovered/Resolved]
  - Nasal polyps [Recovered/Resolved]
  - Arthralgia [Recovered/Resolved]
  - Joint range of motion decreased [Recovered/Resolved]
  - Pneumonia [Recovered/Resolved]
  - Breast induration [Recovered/Resolved]
  - Influenza like illness [Recovered/Resolved]
  - Cough [Not Recovered/Not Resolved]
  - Nasopharyngitis [Recovered/Resolved]
  - COVID-19 [Recovered/Resolved]
  - Vision blurred [Recovered/Resolved]
  - Sinus polyp [Recovered/Resolved]
  - B-lymphocyte count decreased [Not Recovered/Not Resolved]
  - Pain in extremity [Recovered/Resolved]
  - Otitis media [Recovered/Resolved]
  - Sudden hearing loss [Recovered/Resolved]
  - Ear discomfort [Recovered/Resolved]
  - Sinusitis [Not Recovered/Not Resolved]
  - Oropharyngeal pain [Not Recovered/Not Resolved]
  - Dysphagia [Not Recovered/Not Resolved]
  - Dry eye [Recovered/Resolved]

NARRATIVE: CASE EVENT DATE: 20181018
